FAERS Safety Report 9690321 (Version 2)
Quarter: 2013Q4

REPORT INFORMATION
  Report Type: Report from Study
  Country: NL (occurrence: NL)
  Receive Date: 20131115
  Receipt Date: 20131209
  Transmission Date: 20140711
  Serious: Yes (Death, Hospitalization, Disabling, Other)
  Sender: FDA-Public Use
  Company Number: NL-JNJFOC-20131108678

PATIENT
  Age: 87 Year
  Sex: Female
  Weight: 74 kg

DRUGS (7)
  1. XARELTO [Suspect]
     Indication: ATRIAL FIBRILLATION
     Route: 048
     Dates: start: 20130612, end: 20131005
  2. XARELTO [Suspect]
     Indication: CEREBROVASCULAR ACCIDENT PROPHYLAXIS
     Route: 048
     Dates: start: 20130612, end: 20131005
  3. SELOKEEN [Concomitant]
     Route: 065
     Dates: start: 20130610, end: 20130709
  4. BISOPROLOL [Concomitant]
     Route: 065
     Dates: start: 20130710
  5. ATORVASTATIN [Concomitant]
     Route: 065
     Dates: start: 20090415
  6. INSULIN [Concomitant]
     Route: 065
     Dates: start: 20070305
  7. FUROSEMIDE [Concomitant]
     Route: 065
     Dates: start: 20130722

REACTIONS (3)
  - Ischaemic stroke [Fatal]
  - Colon neoplasm [Not Recovered/Not Resolved]
  - Anaemia [Not Recovered/Not Resolved]
